FAERS Safety Report 17016033 (Version 2)
Quarter: 2019Q4

REPORT INFORMATION
  Report Type: Report from Study
  Country: AU (occurrence: AU)
  Receive Date: 20191111
  Receipt Date: 20191210
  Transmission Date: 20200122
  Serious: No
  Sender: FDA-Public Use
  Company Number: AU-EMD SERONO-9127648

PATIENT
  Sex: Female

DRUGS (2)
  1. MAVENCLAD [Suspect]
     Active Substance: CLADRIBINE
     Dosage: SECOND YEAR FIRST WEEK THERAPY
     Route: 048
     Dates: start: 20190818, end: 20190822
  2. MAVENCLAD [Suspect]
     Active Substance: CLADRIBINE
     Indication: MULTIPLE SCLEROSIS
     Dosage: FIRST YEAR THERAPY WITH 7 TABLETS (EACH OF 10 MG) TOTALLY
     Route: 048
     Dates: start: 20180804, end: 20180808

REACTIONS (1)
  - Lymphocyte count decreased [Not Recovered/Not Resolved]
